FAERS Safety Report 7465798-7 (Version None)
Quarter: 2011Q2

REPORT INFORMATION
  Report Type: 
  Country: None (occurrence: None)
  Receive Date: 20110509
  Receipt Date: 20100416
  Transmission Date: 20111010
  Serious: No
  Sender: FDA-Public Use
  Company Number: US-ALEXION-A201000455

PATIENT
  Sex: Female

DRUGS (12)
  1. AMBIEN CR [Concomitant]
     Indication: SLEEP DISORDER
     Dosage: 12.5 MG, QD (QHS)
     Route: 048
  2. FOLIC ACID [Concomitant]
     Dosage: 1 MG, UNK
  3. SYNTHROID [Concomitant]
     Dosage: 175 UG, UNK
  4. EFFEXOR [Concomitant]
     Dosage: 150 MG, UNK
  5. SOLIRIS [Suspect]
     Indication: PAROXYSMAL NOCTURNAL HAEMOGLOBINURIA
     Dosage: 600 MG, QW
     Route: 042
     Dates: start: 20080201, end: 20080228
  6. CYTOXAN [Suspect]
     Indication: HAEMOLYTIC ANAEMIA
     Dosage: 2290 MG, QMONTH FOR 6 MONTHS
     Route: 042
     Dates: start: 20100330
  7. MESNA [Concomitant]
     Indication: PREMEDICATION
     Dosage: 2290 MG, SINGLE, QMONTH FOR 6 MONTHS
     Dates: start: 20100330
  8. DECADRON [Concomitant]
     Indication: PREMEDICATION
     Dosage: 20 MG, SINGLE, QMONTH FOR 6 MONTHS
     Dates: start: 20100330
  9. FLEXERIL [Concomitant]
     Dosage: 10 MG, UNK
  10. PLAQUENIL [Concomitant]
     Indication: SJOGREN'S SYNDROME
     Dosage: 200 MG, UNK
  11. SOLIRIS [Suspect]
     Dosage: 900 MG, Q2W
     Route: 042
     Dates: start: 20080101
  12. NEURONTIN [Concomitant]
     Dosage: 300 MG, UNK

REACTIONS (3)
  - BLOOD PRODUCT TRANSFUSION DEPENDENT [None]
  - NAUSEA [None]
  - FATIGUE [None]
